FAERS Safety Report 16778407 (Version 3)
Quarter: 2020Q3

REPORT INFORMATION
  Report Type: Spontaneous
  Country: DE (occurrence: DE)
  Receive Date: 20190906
  Receipt Date: 20200807
  Transmission Date: 20201102
  Serious: Yes (Congenital Anomaly, Other)
  Sender: FDA-Public Use
  Company Number: PHHY2019DE201555

PATIENT
  Age: 9 Month
  Sex: Female
  Weight: 2.3 kg

DRUGS (4)
  1. LEVETIRACETAM. [Suspect]
     Active Substance: LEVETIRACETAM
     Indication: FOETAL EXPOSURE DURING PREGNANCY
     Dosage: MATERNAL DOSE: 1000 MG, Q12H (2000 MG, QD)
     Route: 064
     Dates: start: 201601, end: 20160210
  2. BELLA HEXAL [Concomitant]
     Active Substance: CYPROTERONE ACETATE\ETHINYL ESTRADIOL
     Indication: FOETAL EXPOSURE DURING PREGNANCY
     Dosage: MATERNAL DOSE: 2 MG, QD
     Route: 064
     Dates: start: 201601, end: 20160204
  3. OSPOLOT [Suspect]
     Active Substance: SULTHIAME
     Indication: FOETAL EXPOSURE DURING PREGNANCY
     Dosage: MATERNAL DOSE: 300 MG QD
     Route: 064
     Dates: start: 201601, end: 20161003
  4. LEVETIRACETAM. [Suspect]
     Active Substance: LEVETIRACETAM
     Dosage: MATERNAL DOSE: 1250 MG, QD
     Route: 064
     Dates: start: 20160211, end: 20161003

REACTIONS (3)
  - Small for dates baby [Unknown]
  - Foetal exposure during pregnancy [Unknown]
  - Congenital cyst [Not Recovered/Not Resolved]

NARRATIVE: CASE EVENT DATE: 2016
